FAERS Safety Report 11103782 (Version 3)
Quarter: 2015Q2

REPORT INFORMATION
  Report Type: Report from Study
  Country: BR (occurrence: BR)
  Receive Date: 20150511
  Receipt Date: 20150528
  Transmission Date: 20150821
  Serious: Yes (Hospitalization, Other)
  Sender: FDA-Public Use
  Company Number: BR-GILEAD-2015-0152280

PATIENT
  Age: 39 Year
  Sex: Male

DRUGS (7)
  1. FILGRASTINE [Concomitant]
     Indication: NEUTROPENIA
     Dosage: UNK, ONCE
     Route: 058
     Dates: start: 20150325, end: 20150325
  2. PACLITAXEL. [Suspect]
     Active Substance: PACLITAXEL
     Dosage: 179 UNK, UNK
     Route: 042
     Dates: start: 20150225, end: 20150225
  3. PACLITAXEL. [Suspect]
     Active Substance: PACLITAXEL
     Dosage: 100 MG/M2, Q1WK
     Route: 042
     Dates: start: 20150504, end: 20150518
  4. EMTRICITABINE/TENOFOVIR DISOPROXIL FUMARATE [Suspect]
     Active Substance: EMTRICITABINE\TENOFOVIR DISOPROXIL
     Indication: HIV INFECTION
     Dosage: 300/200 MG, QD
     Route: 048
     Dates: start: 20150123, end: 20150501
  5. PACLITAXEL. [Suspect]
     Active Substance: PACLITAXEL
     Indication: PRODUCT USED FOR UNKNOWN INDICATION
     Dosage: 184 MG, ONCE
     Route: 042
     Dates: start: 20150123, end: 20150123
  6. FILGRASTINE [Concomitant]
     Dosage: 1 DF, UNK
     Route: 065
     Dates: start: 20150510, end: 20150510
  7. EFAVIRENZ [Suspect]
     Active Substance: EFAVIRENZ
     Indication: HIV INFECTION
     Dosage: 600 (UNITS NOT SPECIFIED, QD
     Route: 048
     Dates: start: 20150123, end: 20150501

REACTIONS (1)
  - Kaposi^s sarcoma [Recovered/Resolved]

NARRATIVE: CASE EVENT DATE: 20150429
